FAERS Safety Report 8399761-9 (Version None)
Quarter: 2012Q2

REPORT INFORMATION
  Report Type: 
  Country: None (occurrence: None)
  Receive Date: 20120531
  Receipt Date: 20120518
  Transmission Date: 20120825
  Serious: No
  Sender: FDA-Public Use
  Company Number: US-ASTRAZENECA-2012SE32402

PATIENT
  Age: 76 Year
  Sex: Female
  Weight: 40.8 kg

DRUGS (14)
  1. PULMICORT [Suspect]
     Indication: DYSPNOEA
     Dosage: 0.5 MG/2 ML TWICE DAILY
     Route: 055
     Dates: start: 20110101
  2. LISINOPRIL [Suspect]
     Route: 048
  3. BROVANA [Concomitant]
  4. PULMICORT [Suspect]
     Indication: ASTHMA
     Dosage: 0.5 MG/2 ML TWICE DAILY
     Route: 055
     Dates: start: 20110101
  5. ASPIRIN [Concomitant]
  6. ALLERGY PILL [Concomitant]
     Indication: HYPERSENSITIVITY
  7. SPIRIVA [Concomitant]
  8. VITAMIN B-12 [Concomitant]
  9. SINGULAIR [Concomitant]
  10. COMBIVENT [Concomitant]
  11. FLUID PILL [Concomitant]
  12. BENZOATE [Concomitant]
     Indication: OROPHARYNGEAL PAIN
  13. OMEPRAZOLE [Suspect]
     Indication: ABDOMINAL DISCOMFORT
     Route: 048
  14. FERROUS SULFATE TAB [Concomitant]
     Indication: ANAEMIA

REACTIONS (3)
  - WEIGHT DECREASED [None]
  - BONE PAIN [None]
  - MYALGIA [None]
